FAERS Safety Report 4761883-9 (Version None)
Quarter: 2005Q3

REPORT INFORMATION
  Report Type: 
  Country: None (occurrence: None)
  Receive Date: 20050906
  Receipt Date: 20050824
  Transmission Date: 20060218
  Serious: Yes (Life-Threatening, Hospitalization, Other)
  Sender: FDA-Public Use
  Company Number: 200516366US

PATIENT
  Sex: Male
  Weight: 77.2 kg

DRUGS (16)
  1. LANTUS [Suspect]
     Indication: DIABETES MELLITUS
     Dosage: DOSE UNIT: UNITS
     Route: 058
     Dates: start: 20050101
  2. NORVASC [Concomitant]
     Dosage: DOSE: UNK
  3. HYDROCHLOROTHIAZIDE [Concomitant]
  4. KEPPRA [Concomitant]
     Dosage: DOSE: UNK
  5. SSRI [Concomitant]
     Dosage: DOSE: UNK
  6. LIPITOR [Concomitant]
     Dosage: DOSE: UNK
  7. ASPIRIN [Concomitant]
     Dosage: DOSE: UNK
  8. NPH INSULIN [Concomitant]
     Dosage: DOSE: UNK
  9. NITROFURANTOIN [Concomitant]
     Dosage: DOSE: UNK
  10. METOPROLOL [Concomitant]
     Dosage: DOSE: UNK
  11. ENALAPRIL [Concomitant]
     Dosage: DOSE: UNK
  12. MAGNESIUM OXIDE [Concomitant]
     Dosage: DOSE: UNK
  13. DOCUSATE [Concomitant]
     Dosage: DOSE: UNK
  14. RANITIDINE HCL [Concomitant]
     Dosage: DOSE: UNK
  15. RESTORIL [Concomitant]
     Dosage: DOSE: UNK
  16. REGULAR INSULIN NOS [Concomitant]

REACTIONS (4)
  - CARDIAC ARREST [None]
  - CORONARY ARTERY DISEASE [None]
  - CORONARY ARTERY OCCLUSION [None]
  - LOSS OF CONSCIOUSNESS [None]
